FAERS Safety Report 20683455 (Version 2)
Quarter: 2022Q2

REPORT INFORMATION
  Report Type: Report from Study
  Country: US (occurrence: US)
  Receive Date: 20220407
  Receipt Date: 20220414
  Transmission Date: 20220721
  Serious: No
  Sender: FDA-Public Use
  Company Number: US-NOVARTISTESTPH-NVSC2022US078349

PATIENT
  Sex: Male
  Weight: 97.976 kg

DRUGS (1)
  1. ENTRESTO [Suspect]
     Active Substance: SACUBITRIL\VALSARTAN
     Indication: Cardiac failure chronic
     Dosage: 97.03 MG, BID
     Route: 048
     Dates: start: 202107

REACTIONS (2)
  - Hypersensitivity [Unknown]
  - Cough [Not Recovered/Not Resolved]
